FAERS Safety Report 5714545-5 (Version None)
Quarter: 2008Q2

REPORT INFORMATION
  Report Type: 
  Country: None (occurrence: None)
  Receive Date: 20080421
  Receipt Date: 20080404
  Transmission Date: 20081010
  Serious: Yes (Life-Threatening, Hospitalization)
  Sender: FDA-Public Use
  Company Number: 2008AL002256

PATIENT
  Age: 69 Year
  Sex: Male

DRUGS (11)
  1. DICLOFENAC SODIUM [Suspect]
     Indication: PROCEDURAL PAIN
     Dosage: 100 MG; QD
     Dates: start: 20071127, end: 20071203
  2. ATORVASTATIN CALCIUM [Concomitant]
  3. FLOXACILLIN SODIUM [Concomitant]
  4. EZETIMIBE [Concomitant]
  5. FUSIDIC ACID [Concomitant]
  6. ACETYLSALICYLIC ACID SRT [Concomitant]
  7. ATENOLOL [Concomitant]
  8. ESOMEPRAZOLE [Concomitant]
  9. FOLIC ACID [Concomitant]
  10. RAMIPRIL [Concomitant]
  11. TRAMADOL HCL [Concomitant]

REACTIONS (2)
  - RENAL FAILURE ACUTE [None]
  - RHABDOMYOLYSIS [None]
